FAERS Safety Report 7879554-9 (Version None)
Quarter: 2011Q4

REPORT INFORMATION
  Report Type: 
  Country: None (occurrence: None)
  Receive Date: 20111101
  Receipt Date: 20111007
  Transmission Date: 20120403
  Serious: Yes (Other)
  Sender: FDA-Public Use
  Company Number: CA-GLAXOSMITHKLINE-A0948359A

PATIENT
  Sex: Female
  Weight: 79.5 kg

DRUGS (4)
  1. ATARAX [Concomitant]
     Indication: PRURITUS
     Dosage: 10MG AT NIGHT
     Dates: start: 20110922
  2. VERDESO [Suspect]
     Indication: URTICARIA
     Route: 061
     Dates: start: 20110929, end: 20110929
  3. LEVOTHYROXINE SODIUM [Concomitant]
     Indication: HYPOTHYROIDISM
     Dosage: .225MG UNKNOWN
  4. CETIRIZINE HCL [Concomitant]
     Indication: PRURITUS
     Dosage: 20MG UNKNOWN
     Dates: start: 20110913

REACTIONS (4)
  - ANGIOEDEMA [None]
  - CIRCUMORAL OEDEMA [None]
  - EYE SWELLING [None]
  - ERYTHEMA [None]
